FAERS Safety Report 8229869-X (Version None)
Quarter: 2012Q1

REPORT INFORMATION
  Report Type: 
  Country: None (occurrence: None)
  Receive Date: 20120323
  Receipt Date: 20120314
  Transmission Date: 20120608
  Serious: Yes (Hospitalization)
  Sender: FDA-Public Use
  Company Number: US-BIOGENIDEC-2011BI031480

PATIENT
  Age: 44 Year
  Sex: Male

DRUGS (2)
  1. TYSABRI [Suspect]
     Indication: MULTIPLE SCLEROSIS
     Route: 042
     Dates: start: 20070711
  2. AMPYRA [Concomitant]
     Dates: start: 20110804

REACTIONS (5)
  - PYREXIA [None]
  - CONVULSION [None]
  - DECUBITUS ULCER [None]
  - MUSCULAR WEAKNESS [None]
  - FALL [None]
